FAERS Safety Report 12673243 (Version 2)
Quarter: 2016Q4

REPORT INFORMATION
  Report Type: Report from Study
  Country: IT (occurrence: JP)
  Receive Date: 20160822
  Receipt Date: 20161114
  Transmission Date: 20170207
  Serious: Yes (Disabling, Other)
  Sender: FDA-Public Use
  Company Number: IT-SIGMA-TAU US-2016STPI000624

PATIENT
  Age: 69 Year
  Sex: Male

DRUGS (13)
  1. CARNITOR [Suspect]
     Active Substance: LEVOCARNITINE
     Indication: CARNITINE DEFICIENCY
     Dosage: 1000 MG, TIW
     Route: 010
     Dates: start: 20150514, end: 20151222
  2. GLYCERIN                           /00200601/ [Concomitant]
     Active Substance: GLYCERIN
  3. NEXIUM [Concomitant]
     Active Substance: ESOMEPRAZOLE MAGNESIUM
  4. WARFARIN [Suspect]
     Active Substance: WARFARIN
  5. BIXALOMER [Concomitant]
     Active Substance: BIXALOMER
  6. ZOLPIDEM TARTRATE. [Concomitant]
     Active Substance: ZOLPIDEM TARTRATE
  7. GASCON [Concomitant]
     Active Substance: DIMETHICONE
  8. PROCTOSEDYL [Concomitant]
     Active Substance: DIBUCAINE HYDROCHLORIDE\HYDROCORTISONE
  9. ELTACIN                            /00047102/ [Concomitant]
  10. BAYASPIRIN [Suspect]
     Active Substance: ASPIRIN
  11. REBAMIPIDE [Concomitant]
     Active Substance: REBAMIPIDE
  12. CHALDOL [Concomitant]
  13. AMLODIPINE [Concomitant]
     Active Substance: AMLODIPINE BESYLATE

REACTIONS (1)
  - Haemorrhagic cerebral infarction [Not Recovered/Not Resolved]

NARRATIVE: CASE EVENT DATE: 20151218
